FAERS Safety Report 10277352 (Version 1)
Quarter: 2014Q3

REPORT INFORMATION
  Report Type: Spontaneous
  Country: US (occurrence: US)
  Receive Date: 20140703
  Receipt Date: 20140703
  Transmission Date: 20150326
  Serious: Yes (Other)
  Sender: FDA-Public Use
  Company Number: US-MALLINCKRODT-T201305036

PATIENT
  Age: 49 Year
  Sex: Female

DRUGS (4)
  1. BACLOFEN. [Suspect]
     Active Substance: BACLOFEN
     Indication: PRODUCT USED FOR UNKNOWN INDICATION
     Dosage: 20 MG, TID
     Route: 048
  2. ROXICODONE [Suspect]
     Active Substance: OXYCODONE HYDROCHLORIDE
     Indication: PRODUCT USED FOR UNKNOWN INDICATION
     Dosage: UNK
     Route: 065
  3. GABLOFEN [Suspect]
     Active Substance: BACLOFEN
     Indication: MUSCLE SPASTICITY
     Dosage: 1009.6 MCG/DAY
     Route: 037
  4. GABLOFEN [Suspect]
     Active Substance: BACLOFEN
     Dosage: 327.5 MCG, OVER 10 MINUTES
     Route: 037
     Dates: start: 20131005, end: 20131005

REACTIONS (3)
  - Overdose [Unknown]
  - Depressed level of consciousness [Unknown]
  - Abdominal pain [Unknown]

NARRATIVE: CASE EVENT DATE: 20131004
